FAERS Safety Report 18677398 (Version 2)
Quarter: 2021Q1

REPORT INFORMATION
  Report Type: Spontaneous
  Country: DE (occurrence: DE)
  Receive Date: 20201229
  Receipt Date: 20210125
  Transmission Date: 20210419
  Serious: Yes (Other)
  Sender: FDA-Public Use
  Company Number: DE-PFIZER INC-2020507722

PATIENT
  Age: 43 Year
  Sex: Female

DRUGS (1)
  1. IBUPROFEN. [Suspect]
     Active Substance: IBUPROFEN
     Indication: PAIN
     Dosage: 40 DOSAGE FORM, MONTHLY
     Route: 048

REACTIONS (4)
  - Meningioma [Unknown]
  - Motor dysfunction [Unknown]
  - Drug abuse [Unknown]
  - Diplopia [Unknown]
